FAERS Safety Report 23358526 (Version 1)
Quarter: 2024Q1

REPORT INFORMATION
  Report Type: Spontaneous
  Country: CH (occurrence: CH)
  Receive Date: 20240102
  Receipt Date: 20240102
  Transmission Date: 20240410
  Serious: Yes (Other)
  Sender: FDA-Public Use
  Company Number: CH-ADMA BIOLOGICS INC.-CH-2023ADM000249

PATIENT

DRUGS (1)
  1. HUMAN IMMUNOGLOBULIN G [Suspect]
     Active Substance: HUMAN IMMUNOGLOBULIN G
     Indication: Multisystem inflammatory syndrome in children
     Dosage: 2 GRAM PER KILOGRAM
     Route: 042

REACTIONS (2)
  - Coronary artery aneurysm [Unknown]
  - Off label use [Unknown]
